FAERS Safety Report 4761136-9 (Version None)
Quarter: 2005Q3

REPORT INFORMATION
  Report Type: 
  Country: None (occurrence: None)
  Receive Date: 20050901
  Receipt Date: 20050829
  Transmission Date: 20060218
  Serious: Yes (Hospitalization)
  Sender: FDA-Public Use
  Company Number: 2005-131423-NL

PATIENT
  Age: 33 Year
  Sex: Female

DRUGS (1)
  1. MIRTAZAPINE [Suspect]
     Indication: DEPRESSION
     Dosage: 2 DF/DF, ORAL
     Route: 048
     Dates: start: 20050501, end: 20050101

REACTIONS (1)
  - SUICIDE ATTEMPT [None]
